FAERS Safety Report 16163243 (Version 1)
Quarter: 2019Q2

REPORT INFORMATION
  Report Type: Report from Study
  Country: GB (occurrence: GB)
  Receive Date: 20190405
  Receipt Date: 20190405
  Transmission Date: 20190711
  Serious: Yes (Death, Hospitalization, Other)
  Sender: FDA-Public Use
  Company Number: GB-REGENERON PHARMACEUTICALS, INC.-2019-23064

PATIENT

DRUGS (1)
  1. CEMIPLIMAB [Suspect]
     Active Substance: CEMIPLIMAB
     Indication: SKIN SQUAMOUS CELL CARCINOMA METASTATIC
     Dosage: 350 MG, Q3W
     Route: 042
     Dates: start: 20190222

REACTIONS (17)
  - Metastases to lung [Fatal]
  - Delirium [Fatal]
  - C-reactive protein increased [Fatal]
  - Disease recurrence [Fatal]
  - Blood calcium increased [Fatal]
  - Inflammatory marker increased [Fatal]
  - Post procedural infection [Fatal]
  - Lymphangitis [Fatal]
  - Cough [Fatal]
  - Pleural effusion [Fatal]
  - White blood cell count increased [Fatal]
  - Skin infection [Fatal]
  - General physical health deterioration [Fatal]
  - Pneumonia [Fatal]
  - Lung consolidation [Fatal]
  - Lower respiratory tract infection [Fatal]
  - Dyspnoea [Fatal]

NARRATIVE: CASE EVENT DATE: 20190303
